FAERS Safety Report 18296185 (Version 3)
Quarter: 2021Q1

REPORT INFORMATION
  Report Type: Spontaneous
  Country: US (occurrence: US)
  Receive Date: 20200922
  Receipt Date: 20210118
  Transmission Date: 20210419
  Serious: Yes (Other)
  Sender: FDA-Public Use
  Company Number: US-SHIRE-US202030553

PATIENT
  Sex: Male
  Weight: 65.76 kg

DRUGS (19)
  1. AMOXICILLIN. [Concomitant]
     Active Substance: AMOXICILLIN
     Indication: PRODUCT USED FOR UNKNOWN INDICATION
  2. TYLENOL EXTRA STRENGTH [Concomitant]
     Active Substance: ACETAMINOPHEN
  3. AMLODIPINE;ATORVASTATIN [Concomitant]
     Indication: PRODUCT USED FOR UNKNOWN INDICATION
  4. ACETAMINOPHEN. [Concomitant]
     Active Substance: ACETAMINOPHEN
     Indication: PRODUCT USED FOR UNKNOWN INDICATION
  5. PREDNISONE [PREDNISONE ACETATE] [Concomitant]
     Active Substance: PREDNISONE ACETATE
     Indication: INFLAMMATION
     Dosage: UNK
     Route: 065
     Dates: start: 20201221, end: 20201227
  6. EPINEPHRINE. [Concomitant]
     Active Substance: EPINEPHRINE
     Indication: PRODUCT USED FOR UNKNOWN INDICATION
  7. DIPHENHYDRAMINE. [Concomitant]
     Active Substance: DIPHENHYDRAMINE
     Indication: PRODUCT USED FOR UNKNOWN INDICATION
  8. LISINOPRIL. [Concomitant]
     Active Substance: LISINOPRIL
     Indication: PRODUCT USED FOR UNKNOWN INDICATION
  9. ASPIRIN [ACETYLSALICYLIC ACID] [Concomitant]
     Active Substance: ASPIRIN
     Indication: PRODUCT USED FOR UNKNOWN INDICATION
  10. GAMMAGARD LIQUID [Suspect]
     Active Substance: HUMAN IMMUNOGLOBULIN G
     Indication: IMMUNODEFICIENCY COMMON VARIABLE
     Dosage: 40 GRAM, EVERY 4 WK
     Route: 042
     Dates: start: 20181205
  11. MAGNESIUM [Concomitant]
     Active Substance: MAGNESIUM
     Indication: PRODUCT USED FOR UNKNOWN INDICATION
  12. ZOLPIDEM [Concomitant]
     Active Substance: ZOLPIDEM TARTRATE
     Indication: PRODUCT USED FOR UNKNOWN INDICATION
  13. FUROSEMIDE. [Concomitant]
     Active Substance: FUROSEMIDE
     Indication: PRODUCT USED FOR UNKNOWN INDICATION
  14. SINGULAIR [Concomitant]
     Active Substance: MONTELUKAST SODIUM
     Indication: PRODUCT USED FOR UNKNOWN INDICATION
  15. DOFETILIDE. [Concomitant]
     Active Substance: DOFETILIDE
     Indication: PRODUCT USED FOR UNKNOWN INDICATION
  16. ELIQUIS [Concomitant]
     Active Substance: APIXABAN
     Indication: PRODUCT USED FOR UNKNOWN INDICATION
  17. SODIUM CHLORIDE. [Concomitant]
     Active Substance: SODIUM CHLORIDE
     Indication: PRODUCT USED FOR UNKNOWN INDICATION
  18. DOXYCYCLINE. [Concomitant]
     Active Substance: DOXYCYCLINE
     Indication: PRODUCT USED FOR UNKNOWN INDICATION
  19. FLONASE [MOMETASONE FUROATE] [Concomitant]
     Active Substance: MOMETASONE FUROATE
     Indication: PRODUCT USED FOR UNKNOWN INDICATION

REACTIONS (2)
  - Arrhythmia [Unknown]
  - Back pain [Recovered/Resolved]
